FAERS Safety Report 6762976-7 (Version None)
Quarter: 2010Q2

REPORT INFORMATION
  Report Type: 
  Country: None (occurrence: None)
  Receive Date: 20100609
  Receipt Date: 20100528
  Transmission Date: 20101027
  Serious: Yes (Hospitalization)
  Sender: FDA-Public Use
  Company Number: FR-BAYER-201027071GPV

PATIENT
  Age: 91 Year
  Sex: Female

DRUGS (12)
  1. GLUCOR [Suspect]
     Indication: DRUG USE FOR UNKNOWN INDICATION
     Route: 065
  2. ROCEPHIN [Suspect]
     Indication: ERYSIPELAS
     Route: 065
     Dates: start: 20091012, end: 20091014
  3. PLAVIX [Suspect]
     Indication: DRUG USE FOR UNKNOWN INDICATION
     Route: 065
  4. ROVAMYCIN [Suspect]
     Indication: ERYSIPELAS
     Route: 065
     Dates: start: 20091016, end: 20091021
  5. CLAMOXYL [Concomitant]
     Indication: ERYSIPELAS
     Dosage: TAKEN TWICE
  6. LOVENOX [Concomitant]
     Route: 058
  7. CELECTOL [Concomitant]
  8. HYZAAR [Concomitant]
     Dosage: AS USED: 50/12.5 MG
  9. LASIX [Concomitant]
     Dosage: AS USED: 20/2 MG/ML
  10. CORTANCYL [Concomitant]
  11. PYOSTACINE [Concomitant]
  12. CIFLOX [Concomitant]

REACTIONS (2)
  - RASH MACULO-PAPULAR [None]
  - RASH PAPULAR [None]
